FAERS Safety Report 23388924 (Version 2)
Quarter: 2024Q3

REPORT INFORMATION
  Report Type: Spontaneous
  Country: US (occurrence: US)
  Receive Date: 20240110
  Receipt Date: 20240716
  Transmission Date: 20241016
  Serious: No
  Sender: GE HEALTHCARE
  Company Number: US-GE HEALTHCARE-2023CSU011419

PATIENT
  Age: 64 Year
  Sex: Male
  Weight: 72.1 kg

DRUGS (6)
  1. OMNIPAQUE [Suspect]
     Active Substance: IOHEXOL
     Indication: Computerised tomogram heart
     Dosage: 60 ML, TOTAL
     Route: 042
     Dates: start: 20231207, end: 20231207
  2. OMNIPAQUE [Suspect]
     Active Substance: IOHEXOL
     Indication: Dyspnoea exertional
  3. OMNIPAQUE [Suspect]
     Active Substance: IOHEXOL
     Indication: Pulmonary embolism
  4. OMNIPAQUE [Suspect]
     Active Substance: IOHEXOL
     Indication: Coronary artery disease
  5. APIXABAN [Concomitant]
     Active Substance: APIXABAN
     Indication: Pulmonary embolism
     Dosage: 5 MG, BID
     Route: 048
  6. HYDROXYCHLOROQUINE SULFATE [Concomitant]
     Active Substance: HYDROXYCHLOROQUINE SULFATE
     Indication: Polymyalgia rheumatica
     Dosage: 200 MG, QD
     Route: 048

REACTIONS (8)
  - Dysphagia [Recovered/Resolved]
  - Suspected product contamination [Recovered/Resolved]
  - Product formulation issue [Recovered/Resolved]
  - Contrast media allergy [Recovered/Resolved]
  - Chills [Recovered/Resolved]
  - Cough [Recovering/Resolving]
  - Headache [Recovered/Resolved]
  - Rash [Recovered/Resolved]

NARRATIVE: CASE EVENT DATE: 20231207
